FAERS Safety Report 13862556 (Version 1)
Quarter: 2017Q3

REPORT INFORMATION
  Report Type: Spontaneous
  Country: US (occurrence: US)
  Receive Date: 20170814
  Receipt Date: 20170814
  Transmission Date: 20171127
  Serious: No
  Sender: FDA-Public Use
  Company Number: US-AMGEN-USASP2017117122

PATIENT
  Age: 61 Year
  Sex: Female

DRUGS (2)
  1. ENBREL [Suspect]
     Active Substance: ETANERCEPT
     Indication: RHEUMATOID ARTHRITIS
     Dosage: 50 MG, QWK
     Route: 065
  2. LEVOTHYROXINE. [Concomitant]
     Active Substance: LEVOTHYROXINE
     Dosage: UNK

REACTIONS (9)
  - Dermatitis allergic [Not Recovered/Not Resolved]
  - Infection [Unknown]
  - Pruritus [Not Recovered/Not Resolved]
  - Wheezing [Unknown]
  - Intentional product misuse [Unknown]
  - Bed bug infestation [Unknown]
  - Rheumatoid factor positive [Unknown]
  - Rash papular [Not Recovered/Not Resolved]
  - Swelling [Unknown]
